FAERS Safety Report 6694357-9 (Version None)
Quarter: 2010Q2

REPORT INFORMATION
  Report Type: 
  Country: None (occurrence: None)
  Receive Date: 20100421
  Receipt Date: 20081013
  Transmission Date: 20101027
  Serious: Yes (Congenital Anomaly)
  Sender: FDA-Public Use
  Company Number: T08-USA-01940-03

PATIENT
  Sex: Male
  Weight: 2.0684 kg

DRUGS (8)
  1. MILNACIPRAN (OPEN-LABEL) (MILNACIPRAN HYDROCHLORIDE) [Suspect]
     Indication: FIBROMYALGIA
     Dosage: 100 MG (50 MG, 2 IN 1 D) TRANSPLACENTAL, 200 MG (100 MG, 2 IN 1 D), TRANSPLACENTAL
     Route: 064
     Dates: start: 20071009, end: 20071228
  2. MILNACIPRAN (OPEN-LABEL) (MILNACIPRAN HYDROCHLORIDE) [Suspect]
     Indication: FIBROMYALGIA
     Dosage: 100 MG (50 MG, 2 IN 1 D) TRANSPLACENTAL, 200 MG (100 MG, 2 IN 1 D), TRANSPLACENTAL
     Route: 064
     Dates: start: 20061129
  3. DEPRO PROGEVERA (MEDROXYPROGESTERONE ACETATE) [Concomitant]
  4. ALBUTEROL [Concomitant]
  5. TYLENOL (PARACETAMOL) [Concomitant]
  6. IMITREX [Concomitant]
  7. SUDAFED 12 HOUR [Concomitant]
  8. NUVARING [Concomitant]

REACTIONS (5)
  - ASTHMA [None]
  - FOETAL GROWTH RETARDATION [None]
  - MATERNAL DRUGS AFFECTING FOETUS [None]
  - PREMATURE BABY [None]
  - TRISOMY 21 [None]
